FAERS Safety Report 13096747 (Version 1)
Quarter: 2017Q1

REPORT INFORMATION
  Report Type: Spontaneous
  Country: US (occurrence: US)
  Receive Date: 20170106
  Receipt Date: 20170106
  Transmission Date: 20170428
  Serious: Yes (Death)
  Sender: FDA-Public Use
  Company Number: None

PATIENT
  Age: 75 Year
  Sex: Male

DRUGS (9)
  1. REVLIMID [Suspect]
     Active Substance: LENALIDOMIDE
     Indication: ACUTE MYELOID LEUKAEMIA
     Dosage: 15MG EVERY OTHER DAY X14D ORAL
     Route: 048
     Dates: start: 20161206, end: 20161220
  2. ISOSORBIDE DINITRATE. [Concomitant]
     Active Substance: ISOSORBIDE DINITRATE
  3. CARVEDILOL. [Concomitant]
     Active Substance: CARVEDILOL
  4. DEXAMETHASONE. [Concomitant]
     Active Substance: DEXAMETHASONE
  5. ACYCLOVIR. [Concomitant]
     Active Substance: ACYCLOVIR
  6. HUMALOG [Concomitant]
     Active Substance: INSULIN LISPRO
  7. NITROSTAT [Concomitant]
     Active Substance: NITROGLYCERIN
  8. VELCADE [Concomitant]
     Active Substance: BORTEZOMIB
  9. FUROSEMIDE. [Concomitant]
     Active Substance: FUROSEMIDE

REACTIONS (8)
  - Asthenia [None]
  - Fall [None]
  - Acute kidney injury [None]
  - Pancytopenia [None]
  - Decreased activity [None]
  - Hypocalcaemia [None]
  - Urine output decreased [None]
  - Dyspnoea [None]

NARRATIVE: CASE EVENT DATE: 20161231
